FAERS Safety Report 8938460 (Version 2)
Quarter: 2013Q1

REPORT INFORMATION
  Report Type: Spontaneous
  Country: US (occurrence: US)
  Receive Date: 20121201
  Receipt Date: 20130130
  Transmission Date: 20140127
  Serious: Yes (Other)
  Sender: FDA-Public Use
  Company Number: US-TEVA-372481USA

PATIENT
  Age: 56 None
  Sex: Female

DRUGS (1)
  1. COPAXONE [Suspect]
     Indication: MULTIPLE SCLEROSIS
     Dates: start: 20110104

REACTIONS (3)
  - Osteoporosis [Unknown]
  - Rheumatoid arthritis [Unknown]
  - Multiple sclerosis relapse [Not Recovered/Not Resolved]
